FAERS Safety Report 10228001 (Version 1)
Quarter: 2014Q1

REPORT INFORMATION
  Report Type: Spontaneous
  Country: US (occurrence: None)
  Receive Date: 20140306
  Receipt Date: 20140306
  Transmission Date: 20141002
  Serious: Yes (Other)
  Sender: FDA-Public Use
  Company Number: 163-21880-13071295

PATIENT
  Age: 56 Year
  Sex: Male
  Weight: 81.6 kg

DRUGS (6)
  1. REVLIMID [Suspect]
     Indication: PLASMA CELL MYELOMA
     Route: 048
     Dates: start: 201008
  2. ACYCLOVIR (ACICLOVIR) (TABLETS) [Concomitant]
  3. FOLIC ACID (FOLIC ACID) (TABLETS) [Concomitant]
  4. VITAMIN B COMPLEX (B-KOMPLEX ^LECIVA^) (TABLETS) [Concomitant]
  5. CALCIUM (CALCIUM) (TABLETS) [Concomitant]
  6. VITAMIN D (ERGOCALCIFEROL) (TABLETS) [Concomitant]

REACTIONS (1)
  - Thrombosis [None]
